FAERS Safety Report 4609637-8 (Version None)
Quarter: 2005Q1

REPORT INFORMATION
  Report Type: 
  Country: None (occurrence: None)
  Receive Date: 20050314
  Receipt Date: 20050225
  Transmission Date: 20050727
  Serious: Yes (Hospitalization, Other)
  Sender: FDA-Public Use
  Company Number: ERP05000040

PATIENT
  Sex: Female

DRUGS (1)
  1. DIDRONATE + CALCIUM (ETIDRONATE DISODIUM/CALCIUM CARBONATE CYCLICAL) T [Suspect]
     Indication: OSTEOPOROSIS
     Dosage: 4 COURSE PER YEAR, ORAL
     Route: 048

REACTIONS (1)
  - COLONIC STENOSIS [None]
